FAERS Safety Report 12306589 (Version 1)
Quarter: 2016Q2

REPORT INFORMATION
  Report Type: Spontaneous
  Country: FI (occurrence: FI)
  Receive Date: 20160426
  Receipt Date: 20160426
  Transmission Date: 20160815
  Serious: Yes (Other)
  Sender: FDA-Public Use
  Company Number: FI-PFIZER INC-2016217500

PATIENT
  Age: 57 Year
  Sex: Female

DRUGS (5)
  1. SALAZOPYRIN EN [Suspect]
     Active Substance: SULFASALAZINE
     Indication: RHEUMATOID ARTHRITIS
     Dosage: 1000 MG, 2X/DAY
     Route: 048
     Dates: start: 201509, end: 2016
  2. KERLON [Concomitant]
     Dosage: 10 MG, 1X/DAY
  3. PARA-TABS [Concomitant]
     Active Substance: ACETAMINOPHEN
     Dosage: 1 G, 1 TO 3 TIMES A DAY, AS NEEDED
  4. ZOLT /01159001/ [Concomitant]
     Dosage: 30 MG, 1X/DAY
  5. THYROXIN [Concomitant]
     Active Substance: LEVOTHYROXINE
     Dosage: 100 UG, 1X/DAY

REACTIONS (2)
  - Fatigue [Recovering/Resolving]
  - Nausea [Recovering/Resolving]
